FAERS Safety Report 4526199-4 (Version None)
Quarter: 2004Q4

REPORT INFORMATION
  Report Type: 
  Country: None (occurrence: None)
  Receive Date: 20041210
  Receipt Date: 20041202
  Transmission Date: 20050328
  Serious: Yes (Death)
  Sender: FDA-Public Use
  Company Number: 04-0095PO

PATIENT
  Age: 51 Year
  Sex: Male

DRUGS (1)
  1. PONSTEL [Suspect]
     Indication: ILL-DEFINED DISORDER
     Dosage: 250 MG, QD, PO
     Route: 048
     Dates: start: 20030601

REACTIONS (1)
  - ANAPHYLACTOID SHOCK [None]
